FAERS Safety Report 9302730 (Version 1)
Quarter: 2013Q2

REPORT INFORMATION
  Report Type: Report from Study
  Country: US (occurrence: US)
  Receive Date: 20130522
  Receipt Date: 20130522
  Transmission Date: 20140414
  Serious: Yes (Other)
  Sender: FDA-Public Use
  Company Number: PHEH2013US010951

PATIENT
  Sex: Male

DRUGS (5)
  1. GLEEVEC [Suspect]
     Indication: CHRONIC MYELOID LEUKAEMIA
     Dosage: 400 MG, DAILY
     Route: 048
     Dates: start: 201203
  2. PROPECIA [Concomitant]
     Dosage: 1 MG, UNK
  3. XYZAL [Concomitant]
     Dosage: 5 MG, UNK
  4. SYNTHROID [Concomitant]
     Dosage: 200 UG, UNK
  5. TERAZOSIN [Concomitant]
     Dosage: 1 MG, UNK

REACTIONS (1)
  - Vocal cord paralysis [Unknown]
